FAERS Safety Report 5909524-9 (Version None)
Quarter: 2008Q4

REPORT INFORMATION
  Report Type: 
  Country: None (occurrence: None)
  Receive Date: 20081002
  Receipt Date: 20080929
  Transmission Date: 20090506
  Serious: Yes (Death, Disabling)
  Sender: FDA-Public Use
  Company Number: 2007SP019330

PATIENT
  Age: 62 Year
  Sex: Female
  Weight: 43 kg

DRUGS (15)
  1. TEMODAL [Suspect]
     Indication: GLIOBLASTOMA MULTIFORME
     Dosage: 150 MG/M2;QW;SC : 150 MG/M2;QW;SC : 150 MG/M2;QW;SC : 150 MG/M2;QW;SC
     Route: 058
     Dates: start: 20061002, end: 20061006
  2. TEMODAL [Suspect]
     Indication: GLIOBLASTOMA MULTIFORME
     Dosage: 150 MG/M2;QW;SC : 150 MG/M2;QW;SC : 150 MG/M2;QW;SC : 150 MG/M2;QW;SC
     Route: 058
     Dates: start: 20061030, end: 20061103
  3. TEMODAL [Suspect]
     Indication: GLIOBLASTOMA MULTIFORME
     Dosage: 150 MG/M2;QW;SC : 150 MG/M2;QW;SC : 150 MG/M2;QW;SC : 150 MG/M2;QW;SC
     Route: 058
     Dates: start: 20061128, end: 20061202
  4. TEMODAL [Suspect]
     Indication: GLIOBLASTOMA MULTIFORME
     Dosage: 150 MG/M2;QW;SC : 150 MG/M2;QW;SC : 150 MG/M2;QW;SC : 150 MG/M2;QW;SC
     Route: 058
     Dates: start: 20061226, end: 20061230
  5. DEPAKENE [Concomitant]
  6. MAALOX [Concomitant]
  7. RINDERON [Concomitant]
  8. MAGLAX [Concomitant]
  9. NASEA-OD [Concomitant]
  10. MYSTAIN [Concomitant]
  11. LAC-B [Concomitant]
  12. ADSORBIN [Concomitant]
  13. LOPEMIN [Concomitant]
  14. SELENICA-R [Concomitant]
  15. POSTERISAN (PHENOL/ESCHERICHIA COLI, LYOPHILIZED0 [Concomitant]

REACTIONS (6)
  - ALTERED STATE OF CONSCIOUSNESS [None]
  - BED REST [None]
  - CEREBRAL ATROPHY [None]
  - DRUG EFFECT DECREASED [None]
  - GENERAL PHYSICAL HEALTH DETERIORATION [None]
  - PERFORMANCE STATUS DECREASED [None]
